FAERS Safety Report 4375465-4 (Version None)
Quarter: 2004Q2

REPORT INFORMATION
  Report Type: 
  Country: None (occurrence: None)
  Receive Date: 20040607
  Receipt Date: 20040520
  Transmission Date: 20050107
  Serious: Yes (Death, Congenital Anomaly)
  Sender: FDA-Public Use
  Company Number: 198585

PATIENT
  Age: 0 Day
  Sex: Female

DRUGS (1)
  1. AVONEX [Suspect]
     Indication: MULTIPLE SCLEROSIS
     Dates: start: 20010801, end: 20020601

REACTIONS (3)
  - CRANIAL NERVE DISORDER [None]
  - DRUG EXPOSURE DURING PREGNANCY [None]
  - LISSENCEPHALY [None]
